FAERS Safety Report 24667296 (Version 3)
Quarter: 2025Q1

REPORT INFORMATION
  Report Type: Spontaneous
  Country: US (occurrence: US)
  Receive Date: 20241126
  Receipt Date: 20250114
  Transmission Date: 20250409
  Serious: Yes (Other)
  Sender: ANI
  Company Number: US-ANIPHARMA-2024-US-062241

PATIENT
  Age: 64 Year
  Sex: Female

DRUGS (2)
  1. CORTICOTROPIN [Suspect]
     Active Substance: CORTICOTROPIN
     Indication: Sarcoidosis
     Route: 058
     Dates: start: 202408
  2. UNSPECIFIED INGREDIENT [Concomitant]
     Active Substance: UNSPECIFIED INGREDIENT

REACTIONS (14)
  - Injection site reaction [Unknown]
  - Feeling jittery [Unknown]
  - Incorrect dose administered [Recovered/Resolved]
  - Condition aggravated [Unknown]
  - Inappropriate schedule of product administration [Recovered/Resolved]
  - Sarcoidosis [Unknown]
  - Injection site bruising [Unknown]
  - Tremor [Unknown]
  - Headache [Recovering/Resolving]
  - Facial discomfort [Unknown]
  - Aphasia [Unknown]
  - Fatigue [Recovering/Resolving]
  - Seizure [Unknown]
  - Dysphonia [Unknown]

NARRATIVE: CASE EVENT DATE: 20241223
